FAERS Safety Report 9282432 (Version 3)
Quarter: 2016Q1

REPORT INFORMATION
  Report Type: Report from Study
  Country: CA (occurrence: CA)
  Receive Date: 20130510
  Receipt Date: 20160330
  Transmission Date: 20160526
  Serious: Yes (Other)
  Sender: FDA-Public Use
  Company Number: CA-ROCHE-1223074

PATIENT
  Sex: Female
  Weight: 80 kg

DRUGS (4)
  1. VENTOLIN [Concomitant]
     Active Substance: ALBUTEROL SULFATE
  2. ACTEMRA [Suspect]
     Active Substance: TOCILIZUMAB
     Route: 042
     Dates: start: 20120516, end: 20160121
  3. ACTEMRA [Suspect]
     Active Substance: TOCILIZUMAB
     Indication: JUVENILE IDIOPATHIC ARTHRITIS
     Route: 042
     Dates: start: 2010, end: 20120329
  4. ALVESCO [Concomitant]
     Active Substance: CICLESONIDE

REACTIONS (3)
  - Oropharyngeal pain [Not Recovered/Not Resolved]
  - Gastroenteritis viral [Unknown]
  - Tonsillar hypertrophy [Not Recovered/Not Resolved]

NARRATIVE: CASE EVENT DATE: 2012
